FAERS Safety Report 10182707 (Version 1)
Quarter: 2014Q2

REPORT INFORMATION
  Report Type: Spontaneous
  Country: US (occurrence: None)
  Receive Date: 20140516
  Receipt Date: 20140516
  Transmission Date: 20141212
  Serious: Yes (Hospitalization)
  Sender: FDA-Public Use
  Company Number: UTC-047539

PATIENT
  Age: 58 Year
  Sex: Female
  Weight: 95.3 kg

DRUGS (4)
  1. REMODULIN (TREPOSTINIL SODIUM (SQ/IV)) INJECTION, 2.5MG/ML [Suspect]
     Indication: COR PULMONALE CHRONIC
     Dosage: 0.049 UG/KG, CONTINUING, IV DRIP
     Route: 041
     Dates: start: 20140206
  2. WARFARIN (WARFARIN) [Concomitant]
  3. SILDENAFIL (SILDENAFIL) [Concomitant]
  4. REVATIO (SILDENAFIL CITRATE) [Concomitant]

REACTIONS (1)
  - Rectal haemorrhage [None]
